FAERS Safety Report 9472939 (Version 1)
Quarter: 2013Q3

REPORT INFORMATION
  Report Type: Spontaneous
  Country: US (occurrence: US)
  Receive Date: 20130823
  Receipt Date: 20130823
  Transmission Date: 20140515
  Serious: Yes (Hospitalization)
  Sender: FDA-Public Use
  Company Number: US-BRISTOL-MYERS SQUIBB COMPANY-17250549

PATIENT
  Age: 63 Year
  Sex: Female

DRUGS (12)
  1. SPRYCEL [Suspect]
     Indication: ACUTE LYMPHOCYTIC LEUKAEMIA
     Dosage: 1DF:140MG TAB
     Route: 048
     Dates: start: 20121201
  2. ELSPAR [Suspect]
  3. CYTARABINE [Suspect]
  4. ATENOLOL [Concomitant]
  5. CENTRUM SILVER [Concomitant]
  6. CYTOVENE [Concomitant]
  7. GAVISCON [Concomitant]
  8. LEVOTHYROXINE [Concomitant]
  9. LORAZEPAM [Concomitant]
  10. METHOTREXATE [Concomitant]
  11. NEUPOGEN [Concomitant]
  12. ONDANSETRON [Concomitant]

REACTIONS (2)
  - Abdominal abscess [Unknown]
  - Rash [Unknown]
